FAERS Safety Report 24362111 (Version 1)
Quarter: 2024Q3

REPORT INFORMATION
  Report Type: Spontaneous
  Country: BR (occurrence: BR)
  Receive Date: 20240925
  Receipt Date: 20240925
  Transmission Date: 20241016
  Serious: Yes (Other)
  Sender: AMGEN
  Company Number: BR-AMGEN-BRASP2024187925

PATIENT
  Age: 69 Year
  Sex: Female

DRUGS (3)
  1. PROLIA [Suspect]
     Active Substance: DENOSUMAB
     Indication: Osteoporosis
     Dosage: 90 MILLIGRAM, Q6MO
     Route: 058
     Dates: start: 2016, end: 202308
  2. PROLIA [Suspect]
     Active Substance: DENOSUMAB
  3. EVENITY [Suspect]
     Active Substance: ROMOSOZUMAB-AQQG
     Indication: Product used for unknown indication
     Route: 065

REACTIONS (4)
  - Spinal fracture [Recovering/Resolving]
  - Fall [Recovering/Resolving]
  - Rib fracture [Recovering/Resolving]
  - Off label use [Unknown]

NARRATIVE: CASE EVENT DATE: 20160101
